FAERS Safety Report 8099810-1 (Version None)
Quarter: 2012Q1

REPORT INFORMATION
  Report Type: 
  Country: None (occurrence: None)
  Receive Date: 20120129
  Receipt Date: 20111009
  Transmission Date: 20120608
  Serious: No
  Sender: FDA-Public Use
  Company Number: US-ABBOTT-11P-163-0862421-00

PATIENT
  Age: 35 Year
  Sex: Male

DRUGS (3)
  1. HUMIRA [Suspect]
     Indication: CROHN'S DISEASE
     Dosage: LOADING DOSE
     Dates: start: 20110926
  2. PREDNISONE TAB [Concomitant]
     Indication: CROHN'S DISEASE
  3. PREDNISONE TAB [Concomitant]
     Indication: PAIN
     Dosage: DAILY, TAPERS DOWN TO 3 TABS NEXT MONTH

REACTIONS (2)
  - NECK PAIN [None]
  - CHEST PAIN [None]
